FAERS Safety Report 7233662 (Version 11)
Quarter: 2013Q2

REPORT INFORMATION
  Report Type: Spontaneous
  Country: US (occurrence: US)
  Receive Date: 20091230
  Receipt Date: 20130624
  Transmission Date: 20140414
  Serious: Yes (Hospitalization, Disabling, Other)
  Sender: FDA-Public Use
  Company Number: US-ROCHE-657270

PATIENT
  Age: 36 Year
  Sex: Male
  Weight: 72.6 kg

DRUGS (4)
  1. ACCUTANE [Suspect]
     Indication: ACNE
     Route: 048
     Dates: start: 1993, end: 2003
  2. AMNESTEEM [Suspect]
     Indication: ACNE
     Route: 065
     Dates: start: 200304, end: 200305
  3. NASACORT [Concomitant]
  4. RHINOCORT [Concomitant]

REACTIONS (21)
  - Colitis ulcerative [Not Recovered/Not Resolved]
  - Inflammatory bowel disease [Unknown]
  - Suicidal ideation [Unknown]
  - Crohn^s disease [Unknown]
  - Depression [Unknown]
  - Musculoskeletal disorder [Unknown]
  - Blood triglycerides increased [Recovered/Resolved]
  - Tonsillar hypertrophy [Unknown]
  - Osteoarthritis [Unknown]
  - Pharyngeal oedema [Recovered/Resolved]
  - Upper-airway cough syndrome [Recovered/Resolved]
  - Chronic sinusitis [Unknown]
  - Hyperlipidaemia [Unknown]
  - Chest pain [Recovered/Resolved]
  - Hypertrophic cardiomyopathy [Unknown]
  - Back pain [Recovered/Resolved]
  - Rhinitis allergic [Unknown]
  - Lymphadenopathy [Unknown]
  - Nasal polyps [Unknown]
  - Epistaxis [Unknown]
  - Hyperhidrosis [Unknown]
